FAERS Safety Report 20740878 (Version 3)
Quarter: 2022Q2

REPORT INFORMATION
  Report Type: Report from Study
  Country: IN (occurrence: IN)
  Receive Date: 20220422
  Receipt Date: 20220622
  Transmission Date: 20220720
  Serious: Yes (Hospitalization)
  Sender: FDA-Public Use
  Company Number: IN-JNJFOC-20220418208

PATIENT
  Age: 68 Year
  Sex: Female
  Weight: 85.5 kg

DRUGS (9)
  1. AMIVANTAMAB [Suspect]
     Active Substance: AMIVANTAMAB
     Indication: Non-small cell lung cancer
     Dates: start: 20220404, end: 20220405
  2. CARBOPLATIN [Suspect]
     Active Substance: CARBOPLATIN
     Indication: Non-small cell lung cancer
     Route: 042
     Dates: start: 20220404, end: 20220404
  3. PEMETREXED [Suspect]
     Active Substance: PEMETREXED
     Indication: Non-small cell lung cancer
     Route: 042
     Dates: start: 20220404, end: 20220404
  4. CILNIDIPINE [Concomitant]
     Active Substance: CILNIDIPINE
     Indication: Hypertension
     Dosage: REPORTED AS RANCIL
     Route: 048
     Dates: start: 2016, end: 20220405
  5. CILNIDIPINE [Concomitant]
     Active Substance: CILNIDIPINE
     Route: 048
     Dates: start: 20220405
  6. METOPROLOL;TELMISARTAN [Concomitant]
     Indication: Hypertension
     Route: 048
     Dates: start: 2016, end: 20220405
  7. DOMPERIDONE\PANTOPRAZOLE SODIUM [Concomitant]
     Active Substance: DOMPERIDONE\PANTOPRAZOLE SODIUM
     Indication: Infusion related reaction
     Route: 030
     Dates: start: 20220404, end: 20220404
  8. ONDANSETRON [Concomitant]
     Active Substance: ONDANSETRON
     Indication: Vomiting
     Dosage: REPORTED AS EMESET
     Route: 030
     Dates: start: 20220404, end: 20220404
  9. ONDANSETRON [Concomitant]
     Active Substance: ONDANSETRON
     Indication: Infusion related reaction

REACTIONS (1)
  - Bacterial infection [Recovered/Resolved]

NARRATIVE: CASE EVENT DATE: 20220407
